FAERS Safety Report 24273168 (Version 1)
Quarter: 2024Q3

REPORT INFORMATION
  Report Type: Spontaneous
  Country: IN (occurrence: IN)
  Receive Date: 20240902
  Receipt Date: 20240902
  Transmission Date: 20241017
  Serious: Yes (Death, Life-Threatening, Hospitalization)
  Sender: ACCORD
  Company Number: IN-MLMSERVICE-20240814-PI162594-00306-1

PATIENT
  Age: 40 Year
  Sex: Male

DRUGS (3)
  1. MYCOPHENOLATE MOFETIL [Suspect]
     Active Substance: MYCOPHENOLATE MOFETIL
     Indication: Immunosuppressant drug therapy
  2. TACROLIMUS [Suspect]
     Active Substance: TACROLIMUS
     Indication: Immunosuppressant drug therapy
  3. DEFLAZACORT [Suspect]
     Active Substance: DEFLAZACORT
     Indication: Immunosuppressant drug therapy

REACTIONS (7)
  - Pneumonia pneumococcal [Fatal]
  - Intestinal sepsis [Fatal]
  - Oliguria [Recovered/Resolved]
  - Hypomagnesaemia [Fatal]
  - Hypokalaemia [Fatal]
  - Pneumonia [Fatal]
  - Infection protozoal [Fatal]

NARRATIVE: CASE EVENT DATE: 20230501
